FAERS Safety Report 5734185-1 (Version None)
Quarter: 2008Q2

REPORT INFORMATION
  Report Type: 
  Country: None (occurrence: None)
  Receive Date: 20080510
  Receipt Date: 20080501
  Transmission Date: 20081010
  Serious: Yes (Hospitalization, Other)
  Sender: FDA-Public Use
  Company Number: PHEH2008US04218

PATIENT
  Age: 63 Year
  Sex: Female
  Weight: 78.004 kg

DRUGS (12)
  1. CLONIDINE [Suspect]
     Indication: HYPERTENSION
     Dosage: 0.1 MG, BID
  2. CLONIDINE [Suspect]
     Dosage: 0.15 MG, BID
     Dates: start: 20070209
  3. CLONIDINE [Suspect]
     Dosage: 2 MG, BID
     Dates: start: 20070326
  4. VERELAN [Suspect]
     Dosage: 100 MG, QHS
     Dates: start: 20070126
  5. COUMADIN [Suspect]
     Dosage: 2MG INSTEAD OF 4MG
  6. MICARDIS [Concomitant]
     Indication: HYPERTENSION
     Dosage: 40 MG, UNK
     Dates: start: 20070326
  7. DARVON [Concomitant]
  8. ASPIRIN [Concomitant]
     Dosage: 81 MG, UNK
  9. ASPIRIN [Concomitant]
     Dosage: 325 MG, UNK
     Dates: start: 20070420
  10. DIOVAN [Suspect]
     Indication: HYPERTENSION
  11. PRILOSEC [Concomitant]
     Indication: GASTROOESOPHAGEAL REFLUX DISEASE
  12. LYRICA [Concomitant]

REACTIONS (34)
  - ACTINIC KERATOSIS [None]
  - ATRIAL FIBRILLATION [None]
  - BLOOD PRESSURE INCREASED [None]
  - BRONCHITIS [None]
  - CARDIAC PACEMAKER INSERTION [None]
  - CHRONIC OBSTRUCTIVE PULMONARY DISEASE [None]
  - COAGULOPATHY [None]
  - CONSTIPATION [None]
  - COUGH [None]
  - DEEP VEIN THROMBOSIS [None]
  - DYSPNOEA [None]
  - FATIGUE [None]
  - GASTROOESOPHAGEAL REFLUX DISEASE [None]
  - HYPOTHYROIDISM [None]
  - INTERNATIONAL NORMALISED RATIO DECREASED [None]
  - INTERNATIONAL NORMALISED RATIO INCREASED [None]
  - LUNG LOBECTOMY [None]
  - LUNG NEOPLASM MALIGNANT [None]
  - NAUSEA [None]
  - NEUROPATHY PERIPHERAL [None]
  - OEDEMA [None]
  - OXYGEN SATURATION DECREASED [None]
  - PAIN IN EXTREMITY [None]
  - PHARYNGOLARYNGEAL PAIN [None]
  - PROTHROMBIN TIME PROLONGED [None]
  - PULMONARY CONGESTION [None]
  - PULMONARY EMBOLISM [None]
  - PULSE ABNORMAL [None]
  - RENAL FAILURE [None]
  - RENAL MASS [None]
  - RHONCHI [None]
  - SWELLING [None]
  - TENDERNESS [None]
  - THROMBOPHLEBITIS SUPERFICIAL [None]
